FAERS Safety Report 14510900 (Version 1)
Quarter: 2018Q1

REPORT INFORMATION
  Report Type: Spontaneous
  Country: US (occurrence: US)
  Receive Date: 20180208
  Receipt Date: 20180208
  Transmission Date: 20180509
  Serious: Yes (Hospitalization)
  Sender: FDA-Public Use
  Company Number: None

PATIENT
  Age: 72 Year
  Sex: Male
  Weight: 109.3 kg

DRUGS (1)
  1. NAPROXEN. [Suspect]
     Active Substance: NAPROXEN
     Indication: PAIN
     Route: 048
     Dates: start: 20110530, end: 20110827

REACTIONS (3)
  - Pruritus [None]
  - Urticaria [None]
  - Angioedema [None]

NARRATIVE: CASE EVENT DATE: 20110827
